FAERS Safety Report 17622586 (Version 1)
Quarter: 2020Q2

REPORT INFORMATION
  Report Type: Spontaneous
  Country: US (occurrence: US)
  Receive Date: 20200403
  Receipt Date: 20200403
  Transmission Date: 20200713
  Serious: No
  Sender: FDA-Public Use
  Company Number: US-SA-2020SA082598

PATIENT
  Age: 45 Year
  Sex: Female

DRUGS (3)
  1. HECTOROL [Suspect]
     Active Substance: DOXERCALCIFEROL
     Dosage: 4 UG; THREE TIMES A WEEK
     Route: 040
     Dates: start: 20200316
  2. NORMAL SALINE [Concomitant]
     Active Substance: SODIUM CHLORIDE
     Dosage: 15 ML
     Route: 042
  3. NORMAL SALINE [Concomitant]
     Active Substance: SODIUM CHLORIDE
     Dosage: 50 ML
     Route: 042

REACTIONS (2)
  - Injection site pain [Unknown]
  - Malabsorption from injection site [Unknown]
